FAERS Safety Report 6774884-6 (Version None)
Quarter: 2010Q2

REPORT INFORMATION
  Report Type: 
  Country: None (occurrence: None)
  Receive Date: 20100617
  Receipt Date: 20100601
  Transmission Date: 20101027
  Serious: Yes (Other)
  Sender: FDA-Public Use
  Company Number: BR-JNJFOC-20100604250

PATIENT
  Sex: Male
  Weight: 83 kg

DRUGS (4)
  1. TRAMAL [Suspect]
     Indication: DRUG USE FOR UNKNOWN INDICATION
     Route: 042
  2. TRAMAL [Suspect]
     Route: 048
  3. CELEBRA [Suspect]
     Indication: SPONDYLITIS
     Route: 048
  4. MIOSAN [Concomitant]
     Indication: MUSCLE RELAXANT THERAPY

REACTIONS (2)
  - DRUG INEFFECTIVE [None]
  - SPINAL COLUMN INJURY [None]
